FAERS Safety Report 15170392 (Version 2)
Quarter: 2018Q3

REPORT INFORMATION
  Report Type: Report from Study
  Country: None (occurrence: US)
  Receive Date: 20180720
  Receipt Date: 20180720
  Transmission Date: 20181010
  Serious: Yes (Hospitalization, Other)
  Sender: FDA-Public Use
  Company Number: US-BAUSCH-BL-2018-019626

PATIENT
  Sex: Female

DRUGS (4)
  1. XIFAXAN [Suspect]
     Active Substance: RIFAXIMIN
     Indication: HEPATIC CIRRHOSIS
     Route: 048
     Dates: start: 2014
  2. POTASSIUM [Suspect]
     Active Substance: POTASSIUM
     Indication: PRODUCT USED FOR UNKNOWN INDICATION
     Route: 048
  3. LACTULOSE. [Concomitant]
     Active Substance: LACTULOSE
     Indication: PRODUCT USED FOR UNKNOWN INDICATION
     Dosage: DOSE: 180CC A DAY
  4. LACTULOSE. [Concomitant]
     Active Substance: LACTULOSE
     Dosage: DOSE: 90CC A DAY

REACTIONS (6)
  - Overdose [Unknown]
  - Somnolence [Unknown]
  - Product use complaint [Unknown]
  - Asthenia [Unknown]
  - Aphasia [Unknown]
  - Ammonia increased [Unknown]
